FAERS Safety Report 7750787-5 (Version None)
Quarter: 2011Q3

REPORT INFORMATION
  Report Type: 
  Country: None (occurrence: None)
  Receive Date: 20110914
  Receipt Date: 20110907
  Transmission Date: 20111222
  Serious: Yes (Hospitalization)
  Sender: FDA-Public Use
  Company Number: AT-JNJFOC-20110902930

PATIENT
  Age: 16 Year
  Sex: Female

DRUGS (2)
  1. FLUOXETINE HCL [Concomitant]
     Route: 065
  2. RISPERDAL [Suspect]
     Indication: MENTAL DISORDER
     Route: 048
     Dates: start: 20110801, end: 20110801

REACTIONS (1)
  - DELIRIUM [None]
